FAERS Safety Report 17664041 (Version 2)
Quarter: 2020Q2

REPORT INFORMATION
  Report Type: Spontaneous
  Country: FR (occurrence: FR)
  Receive Date: 20200414
  Receipt Date: 20200429
  Transmission Date: 20200713
  Serious: Yes (Life-Threatening, Hospitalization)
  Sender: FDA-Public Use
  Company Number: NVSC2020FR095609

PATIENT
  Age: 55 Year
  Sex: Female
  Weight: 72 kg

DRUGS (4)
  1. LERCANIDIPINE [Concomitant]
     Active Substance: LERCANIDIPINE
     Indication: HYPERTENSION
     Dosage: 10 MG, QD
     Route: 048
  2. LUTATHERA [Suspect]
     Active Substance: LUTETIUM OXODOTREOTIDE LU-177
     Indication: NEUROENDOCRINE TUMOUR
     Dosage: 7.4 GBQ
     Route: 065
     Dates: start: 20200218
  3. SOMATULINE LP [Concomitant]
     Active Substance: LANREOTIDE ACETATE
     Indication: CARCINOID TUMOUR OF THE SMALL BOWEL
     Dosage: 120 MG
     Route: 030
  4. IRBESARTAN/HYDROCHLOROTHIAZIDE [Concomitant]
     Active Substance: HYDROCHLOROTHIAZIDE\IRBESARTAN
     Indication: HYPERTENSION
     Dosage: UNK, QD
     Route: 048

REACTIONS (4)
  - Haemorrhage [Recovered/Resolved]
  - Disseminated intravascular coagulation [Recovered/Resolved]
  - Petechiae [Recovered/Resolved]
  - Thrombocytopenia [Unknown]
